FAERS Safety Report 8406904 (Version 2)
Quarter: 2013Q4

REPORT INFORMATION
  Report Type: Report from Study
  Country: JP (occurrence: JP)
  Receive Date: 20120215
  Receipt Date: 20131011
  Transmission Date: 20140711
  Serious: Yes (Death, Life-Threatening, Hospitalization)
  Sender: FDA-Public Use
  Company Number: JP-TEVA-2011004921

PATIENT
  Age: 75 Year
  Sex: Female
  Weight: 38.5 kg

DRUGS (10)
  1. BENDAMUSTINE [Suspect]
     Indication: B-CELL LYMPHOMA
     Route: 042
     Dates: start: 20110201, end: 20110202
  2. BENDAMUSTINE [Suspect]
     Route: 042
     Dates: start: 20110301, end: 20110302
  3. BENDAMUSTINE [Suspect]
     Route: 042
     Dates: start: 20110329, end: 20110330
  4. BENDAMUSTINE [Suspect]
     Route: 042
     Dates: start: 20110421, end: 20110422
  5. BENDAMUSTINE [Suspect]
     Route: 042
     Dates: start: 20110519, end: 20110520
  6. SULFAMETHOXAZOLE W/TRIMETHOPRIM [Concomitant]
  7. VORICONAZOLE [Concomitant]
  8. ACICLOVIR [Concomitant]
  9. AMIODARONE HYDROCHLORIDE [Concomitant]
  10. WARFARIN POTASSIUM [Concomitant]

REACTIONS (7)
  - Cerebral haemorrhage [Fatal]
  - Bradycardia [Recovered/Resolved]
  - Cytomegalovirus test positive [Recovered/Resolved]
  - Lymphocyte count decreased [Recovering/Resolving]
  - White blood cell count decreased [Recovering/Resolving]
  - Neutrophil count decreased [Recovered/Resolved]
  - Platelet count decreased [Recovering/Resolving]
